FAERS Safety Report 20627925 (Version 5)
Quarter: 2023Q1

REPORT INFORMATION
  Report Type: Report from Study
  Country: US (occurrence: None)
  Receive Date: 20220323
  Receipt Date: 20230227
  Transmission Date: 20230417
  Serious: Yes (Hospitalization, Other)
  Sender: FDA-Public Use
  Company Number: US-ROCHE-3056345

PATIENT
  Age: 57 Year
  Sex: Female
  Weight: 86 kg

DRUGS (5)
  1. PLACEBO [Suspect]
     Active Substance: UNSPECIFIED INGREDIENT
     Indication: Invasive breast carcinoma
     Dosage: ON 09/NOV/2021, SHE RECEIVED LAST LOSE OF ATEZOLIZUMAB
     Route: 041
     Dates: start: 20210330
  2. PERTUZUMAB [Suspect]
     Active Substance: PERTUZUMAB
     Indication: Invasive breast carcinoma
     Dosage: LOADING DOSE OF 840 MG FOLLOWED BY MAINTENANCE DOSE OF 420 MG?ON 01/FEB/2022, SHE RECEIVED THE LAST
     Route: 042
     Dates: start: 20210330
  3. TRASTUZUMAB [Suspect]
     Active Substance: TRASTUZUMAB
     Indication: Invasive breast carcinoma
     Dosage: LOADING DOSE OF 8 MG.KG FOLLOWED BY MAINTENANCE DOSE OF 6 MG/KG?N 01/FEB/2022, SHE RECEIVED THE LAST
     Route: 041
     Dates: start: 20210330
  4. PACLITAXEL [Suspect]
     Active Substance: PACLITAXEL
     Indication: Invasive breast carcinoma
     Route: 042
     Dates: start: 20210330
  5. OXYCODONE [Concomitant]
     Active Substance: OXYCODONE
     Route: 048

REACTIONS (10)
  - Hypoxia [Unknown]
  - Aspiration [Recovered/Resolved with Sequelae]
  - Hypokalaemia [Unknown]
  - Periodontal disease [Unknown]
  - Leukocytosis [Unknown]
  - Adrenal insufficiency [Unknown]
  - Adrenal insufficiency [Unknown]
  - Rhabdomyolysis [Recovered/Resolved with Sequelae]
  - Acute kidney injury [Recovered/Resolved with Sequelae]
  - Frostbite [Recovered/Resolved with Sequelae]

NARRATIVE: CASE EVENT DATE: 20210330
